FAERS Safety Report 6146764-0 (Version None)
Quarter: 2009Q2

REPORT INFORMATION
  Report Type: 
  Country: None (occurrence: None)
  Receive Date: 20090403
  Receipt Date: 20090403
  Transmission Date: 20091009
  Serious: Yes (Other)
  Sender: FDA-Public Use
  Company Number: None

PATIENT
  Sex: Female
  Weight: 110 kg

DRUGS (15)
  1. MIRAPEX [Suspect]
     Dosage: 0.25MG TABLET 0.25 MG QHS ORAL
     Route: 048
     Dates: start: 20081009, end: 20090402
  2. ALBUTEROL MDI (ALBUTEROL INHALER) [Concomitant]
  3. ASPIRIN [Concomitant]
  4. ATIVAN [Concomitant]
  5. DEPAKOTE [Concomitant]
  6. FERRUS SULFATE [Concomitant]
  7. LEUPROLIDE ACETATE [Concomitant]
  8. LISINOPRIL [Concomitant]
  9. LORAZEPAM [Concomitant]
  10. METOPROLOL TARTRATE [Concomitant]
  11. MULTIVITAMIN THERAPEUTIC (THERAPEUTIC MULTIVITAMINS) [Concomitant]
  12. NICOTINE [Concomitant]
  13. NORETHINDRONE ACETATE [Concomitant]
  14. ASCORBIC ACID [Concomitant]
  15. VITAMIN D2 (ERGOCALCIFEROL) [Concomitant]

REACTIONS (1)
  - NIGHTMARE [None]
